FAERS Safety Report 23224229 (Version 1)
Quarter: 2023Q4

REPORT INFORMATION
  Report Type: Spontaneous
  Country: US (occurrence: US)
  Receive Date: 20231124
  Receipt Date: 20231124
  Transmission Date: 20240110
  Serious: No
  Sender: FDA-Public Use
  Company Number: US-OPELLA-2023OHG006873

PATIENT
  Sex: Female

DRUGS (4)
  1. PETROLATUM [Suspect]
     Active Substance: PETROLATUM
     Indication: Product used for unknown indication
     Route: 065
  2. COSMETICS [Suspect]
     Active Substance: COSMETICS
     Indication: Product used for unknown indication
     Route: 065
  3. GOLD BOND MEDICATED EXTRA STRENGTH BODY [Suspect]
     Active Substance: MENTHOL
     Indication: Product used for unknown indication
     Route: 065
  4. UNSPECIFIED INGREDIENT [Suspect]
     Active Substance: UNSPECIFIED INGREDIENT
     Indication: Product used for unknown indication
     Route: 065

REACTIONS (1)
  - Rash [Not Recovered/Not Resolved]
